FAERS Safety Report 16387169 (Version 1)
Quarter: 2019Q2

REPORT INFORMATION
  Report Type: Report from Study
  Country: MX (occurrence: MX)
  Receive Date: 20190604
  Receipt Date: 20190604
  Transmission Date: 20190711
  Serious: Yes (Congenital Anomaly, Other)
  Sender: FDA-Public Use
  Company Number: MX-UCBSA-2019022737

PATIENT
  Age: 5 Year
  Sex: Male
  Weight: 16 kg

DRUGS (2)
  1. LEVETIRACETAM. [Suspect]
     Active Substance: LEVETIRACETAM
     Indication: SEIZURE
     Dosage: 500 MG: HALF TABLET TWICE DAILY
     Route: 048
     Dates: start: 2018
  2. VALPROIC ACID. [Concomitant]
     Active Substance: VALPROIC ACID
     Indication: SEIZURE
     Dosage: 4.5 MILLILITER, 3X/DAY (TID)
     Route: 048

REACTIONS (2)
  - Off label use [Unknown]
  - Porencephaly [Not Recovered/Not Resolved]

NARRATIVE: CASE EVENT DATE: 201905
